FAERS Safety Report 18849086 (Version 9)
Quarter: 2023Q1

REPORT INFORMATION
  Report Type: Report from Study
  Country: US (occurrence: US)
  Receive Date: 20210205
  Receipt Date: 20230321
  Transmission Date: 20230418
  Serious: Yes (Hospitalization)
  Sender: FDA-Public Use
  Company Number: US-002147023-NVSC2021US020419

PATIENT
  Age: 76 Year
  Sex: Female
  Weight: 97.052 kg

DRUGS (9)
  1. TREPROSTINIL [Suspect]
     Active Substance: TREPROSTINIL
     Indication: Pulmonary arterial hypertension
     Dosage: UNK, CONT (16NG/KG/MIN)
     Route: 042
     Dates: start: 20201117
  2. TREPROSTINIL [Suspect]
     Active Substance: TREPROSTINIL
     Dosage: UNK UNK, CONT (16 NG/KG/MIN) AT 43ML/24 HOURS
     Route: 042
     Dates: start: 20210118
  3. TREPROSTINIL [Suspect]
     Active Substance: TREPROSTINIL
     Dosage: UNK UNK, CONT (30NG/KG/MIN) (CONCENTRATION: 2.5MG/ML)
     Route: 042
     Dates: start: 20211201
  4. TREPROSTINIL [Suspect]
     Active Substance: TREPROSTINIL
     Dosage: UNK UNK, CONT (30NG/KG/MIN) (CONCENTRATION: 10MG/ML)
     Route: 058
     Dates: start: 20220112
  5. TREPROSTINIL [Suspect]
     Active Substance: TREPROSTINIL
     Dosage: UNK, CONT (30NG/KG/MIN)
     Route: 058
     Dates: start: 20220120
  6. CHLORHEXIDINE [Suspect]
     Active Substance: CHLORHEXIDINE
     Indication: Product used for unknown indication
     Dosage: UNK
     Route: 065
  7. TADALAFIL [Concomitant]
     Active Substance: TADALAFIL
     Indication: Product used for unknown indication
     Dosage: UNK
     Route: 065
  8. XARELTO [Concomitant]
     Active Substance: RIVAROXABAN
     Indication: Product used for unknown indication
     Dosage: UNK
     Route: 065
  9. OFEV [Concomitant]
     Active Substance: NINTEDANIB
     Indication: Product used for unknown indication
     Dosage: UNK
     Route: 065

REACTIONS (13)
  - Pneumonia [Unknown]
  - Infection [Unknown]
  - Wound [Recovering/Resolving]
  - COVID-19 [Unknown]
  - Nasopharyngitis [Unknown]
  - Impaired healing [Not Recovered/Not Resolved]
  - Nausea [Unknown]
  - Pain in extremity [Unknown]
  - Catheter site pain [Unknown]
  - Catheter site ulcer [Unknown]
  - Catheter site irritation [Unknown]
  - Vomiting [Unknown]
  - Diarrhoea [Unknown]

NARRATIVE: CASE EVENT DATE: 20230310
